FAERS Safety Report 13187381 (Version 2)
Quarter: 2017Q1

REPORT INFORMATION
  Report Type: Report from Study
  Country: US (occurrence: US)
  Receive Date: 20170206
  Receipt Date: 20170307
  Transmission Date: 20170428
  Serious: No
  Sender: FDA-Public Use
  Company Number: PHEH2017US003431

PATIENT
  Age: 3 Year
  Sex: Male
  Weight: 18.2 kg

DRUGS (5)
  1. ILARIS [Suspect]
     Active Substance: CANAKINUMAB
     Indication: JUVENILE IDIOPATHIC ARTHRITIS
     Dosage: UNK
     Route: 065
  2. ZANTAC [Concomitant]
     Active Substance: RANITIDINE HYDROCHLORIDE
     Indication: JUVENILE IDIOPATHIC ARTHRITIS
     Dosage: 30MG/2ML, QD
     Route: 048
  3. ILARIS [Suspect]
     Active Substance: CANAKINUMAB
     Dosage: 35 MG EVERY 4 WEEKS, UNK
     Route: 058
     Dates: start: 20161129, end: 20170108
  4. ILARIS [Suspect]
     Active Substance: CANAKINUMAB
     Dosage: 17.5 MG EVERY 4 WEEKS, UNK
     Route: 058
     Dates: start: 20170126
  5. ILARIS [Suspect]
     Active Substance: CANAKINUMAB
     Dosage: 65 MG EVERY 4 WEEKS, UNK
     Route: 058
     Dates: start: 20151230, end: 20161129

REACTIONS (4)
  - Pyrexia [Recovered/Resolved]
  - Rhinorrhoea [Unknown]
  - Headache [Recovered/Resolved]
  - Musculoskeletal pain [Unknown]

NARRATIVE: CASE EVENT DATE: 20170122
